FAERS Safety Report 13061391 (Version 1)
Quarter: 2016Q4

REPORT INFORMATION
  Report Type: Spontaneous
  Country: US (occurrence: US)
  Receive Date: 20161226
  Receipt Date: 20161226
  Transmission Date: 20170207
  Serious: Yes (Other)
  Sender: FDA-Public Use
  Company Number: US-AMGEN-USASP2016180128

PATIENT
  Age: 55 Year
  Sex: Female

DRUGS (2)
  1. PROLIA [Suspect]
     Active Substance: DENOSUMAB
     Indication: OSTEOPOROSIS
     Dosage: 60 MG, Q6MO
     Route: 058
  2. MAGNESIUM [Concomitant]
     Active Substance: MAGNESIUM
     Dosage: UNK

REACTIONS (5)
  - Nasal septum deviation [Unknown]
  - Toothache [Not Recovered/Not Resolved]
  - Swelling face [Not Recovered/Not Resolved]
  - Rheumatoid arthritis [Unknown]
  - Sinus disorder [Unknown]

NARRATIVE: CASE EVENT DATE: 2016
